FAERS Safety Report 8498755-2 (Version None)
Quarter: 2012Q3

REPORT INFORMATION
  Report Type: 
  Country: None (occurrence: None)
  Receive Date: 20120709
  Receipt Date: 20120702
  Transmission Date: 20120928
  Serious: No
  Sender: FDA-Public Use
  Company Number: US-AMGEN-USASP2012038912

PATIENT
  Age: 48 Year
  Sex: Female
  Weight: 60.771 kg

DRUGS (1)
  1. ENBREL [Suspect]
     Indication: RHEUMATOID ARTHRITIS
     Dosage: 50 MG, UNK
     Route: 058
     Dates: start: 20120501

REACTIONS (4)
  - INJECTION SITE HAEMATOMA [None]
  - PLATELET COUNT INCREASED [None]
  - INJECTION SITE REACTION [None]
  - CONTUSION [None]
